FAERS Safety Report 7813599-X (Version None)
Quarter: 2011Q4

REPORT INFORMATION
  Report Type: 
  Country: None (occurrence: None)
  Receive Date: 20111014
  Receipt Date: 20111007
  Transmission Date: 20120403
  Serious: Yes (Hospitalization)
  Sender: FDA-Public Use
  Company Number: US-BIOGENIDEC-2011BI038846

PATIENT
  Age: 41 Year
  Sex: Female

DRUGS (4)
  1. TYSABRI [Suspect]
     Indication: MULTIPLE SCLEROSIS
     Route: 042
     Dates: start: 20100101
  2. BACLOFEN [Concomitant]
     Indication: MUSCLE SPASMS
  3. OXYCONTIN [Concomitant]
     Indication: PAIN
  4. BACLOFEN [Concomitant]
     Indication: MUSCULAR WEAKNESS

REACTIONS (5)
  - LOSS OF CONTROL OF LEGS [None]
  - CYSTITIS [None]
  - PYREXIA [None]
  - ABDOMINAL PAIN UPPER [None]
  - CONSTIPATION [None]
